FAERS Safety Report 21541442 (Version 3)
Quarter: 2023Q1

REPORT INFORMATION
  Report Type: Report from Study
  Country: US (occurrence: US)
  Receive Date: 20221102
  Receipt Date: 20230301
  Transmission Date: 20230418
  Serious: Yes (Other)
  Sender: FDA-Public Use
  Company Number: US-ABBVIE-4163931

PATIENT
  Sex: Female

DRUGS (1)
  1. SKYRIZI [Suspect]
     Active Substance: RISANKIZUMAB-RZAA
     Indication: Psoriasis
     Dosage: STRENGTH: 150 MG.?WEEK 0
     Route: 058

REACTIONS (12)
  - Paranasal cyst [Unknown]
  - Pharyngitis streptococcal [Not Recovered/Not Resolved]
  - Pre-existing condition improved [Recovering/Resolving]
  - Erythema [Unknown]
  - Hypersensitivity [Unknown]
  - Pruritus [Unknown]
  - Pain [Unknown]
  - Unevaluable event [Unknown]
  - Respiratory tract congestion [Not Recovered/Not Resolved]
  - Skin burning sensation [Unknown]
  - General physical condition abnormal [Unknown]
  - Drug ineffective [Unknown]

NARRATIVE: CASE EVENT DATE: 20220101
